APPROVED DRUG PRODUCT: LEVETIRACETAM
Active Ingredient: LEVETIRACETAM
Strength: 750MG
Dosage Form/Route: TABLET, EXTENDED RELEASE;ORAL
Application: A207175 | Product #002 | TE Code: AB
Applicant: HISUN PHARMACEUTICAL (HANGZHOU) CO LTD
Approved: Sep 28, 2017 | RLD: No | RS: No | Type: RX